FAERS Safety Report 20232060 (Version 2)
Quarter: 2022Q1

REPORT INFORMATION
  Report Type: Report from Study
  Country: CN (occurrence: None)
  Receive Date: 20211227
  Receipt Date: 20220103
  Transmission Date: 20220423
  Serious: Yes (Hospitalization)
  Sender: FDA-Public Use
  Company Number: 2021A895866

PATIENT
  Age: 70 Year
  Sex: Male
  Weight: 84.5 kg

DRUGS (1)
  1. SAVOLITINIB [Suspect]
     Active Substance: SAVOLITINIB
     Indication: Non-small cell lung cancer
     Dosage: 600 MG, QD
     Route: 048
     Dates: start: 20211116, end: 20211207

REACTIONS (1)
  - Hepatic function abnormal [Recovering/Resolving]

NARRATIVE: CASE EVENT DATE: 20211207
